FAERS Safety Report 9810102 (Version 2)
Quarter: 2015Q4

REPORT INFORMATION
  Report Type: Spontaneous
  Country: US (occurrence: US)
  Receive Date: 20140110
  Receipt Date: 20151228
  Transmission Date: 20160305
  Serious: Yes (Death, Other)
  Sender: FDA-Public Use
  Company Number: US-SANOFI-AVENTIS-2013SA079667

PATIENT
  Sex: Male

DRUGS (11)
  1. AMITRIPTYLINE [Concomitant]
     Active Substance: AMITRIPTYLINE
  2. ASPIRIN. [Concomitant]
     Active Substance: ASPIRIN
  3. HUMULIN NOS [Concomitant]
     Active Substance: INSULIN HUMAN
     Dosage: DOSE:30 UNIT(S)
     Route: 058
  4. COMBIVENT [Concomitant]
     Active Substance: ALBUTEROL SULFATE\IPRATROPIUM BROMIDE
  5. TYLENOL [Concomitant]
     Active Substance: ACETAMINOPHEN
  6. NPH INSULIN [Concomitant]
     Active Substance: INSULIN BEEF
     Dosage: DOSE:30 UNIT(S)
     Route: 058
  7. FERROUS SULFATE [Concomitant]
     Active Substance: FERROUS SULFATE\FERROUS SULFATE, DRIED
  8. PLAVIX [Suspect]
     Active Substance: CLOPIDOGREL BISULFATE
     Indication: CARDIAC MURMUR
     Route: 048
     Dates: start: 20060430, end: 20060530
  9. ACTOS [Concomitant]
     Active Substance: PIOGLITAZONE HYDROCHLORIDE
  10. ALBUTEROL. [Concomitant]
     Active Substance: ALBUTEROL
  11. VICODIN [Concomitant]
     Active Substance: ACETAMINOPHEN\HYDROCODONE BITARTRATE

REACTIONS (2)
  - Thrombotic thrombocytopenic purpura [Unknown]
  - Gastrointestinal haemorrhage [Unknown]
